FAERS Safety Report 17806353 (Version 1)
Quarter: 2020Q2

REPORT INFORMATION
  Report Type: Spontaneous
  Country: IT (occurrence: IT)
  Receive Date: 20200520
  Receipt Date: 20200520
  Transmission Date: 20200714
  Serious: Yes (Other)
  Sender: FDA-Public Use
  Company Number: IT-ASTRAZENECA-2020SE64407

PATIENT
  Age: 53 Year
  Sex: Male

DRUGS (3)
  1. LUCEN [Suspect]
     Active Substance: ESOMEPRAZOLE
     Dosage: 1.0DF UNKNOWN
     Route: 048
     Dates: start: 20200213, end: 20200214
  2. BIVIS [Concomitant]
     Active Substance: AMLODIPINE BESYLATE\OLMESARTAN MEDOXOMIL
     Dosage: 20 MG/5 MG
     Route: 048
  3. RIOPAN [MAGALDRATE] [Suspect]
     Active Substance: MAGALDRATE
     Dosage: 1.0DF UNKNOWN
     Route: 048
     Dates: start: 20200213, end: 20200214

REACTIONS (5)
  - Rash [Recovering/Resolving]
  - Localised oedema [Recovering/Resolving]
  - Urticaria [Recovering/Resolving]
  - Erythema [Recovering/Resolving]
  - Pruritus [Recovering/Resolving]

NARRATIVE: CASE EVENT DATE: 20200213
